FAERS Safety Report 8402333-0 (Version None)
Quarter: 2012Q2

REPORT INFORMATION
  Report Type: 
  Country: None (occurrence: None)
  Receive Date: 20120601
  Receipt Date: 20120529
  Transmission Date: 20120825
  Serious: Yes (Other)
  Sender: FDA-Public Use
  Company Number: US-AMGEN-USASP2011009905

PATIENT
  Age: 72 Year
  Sex: Female
  Weight: 83.447 kg

DRUGS (1)
  1. ENBREL [Suspect]
     Indication: PSORIASIS
     Dosage: 50 MG, 2 TIMES/WK
     Dates: start: 20101223

REACTIONS (6)
  - GLUCOSE TOLERANCE IMPAIRED [None]
  - DEPRESSION [None]
  - PSORIASIS [None]
  - RASH ERYTHEMATOUS [None]
  - ALCOHOLIC PANCREATITIS [None]
  - HEPATIC ENZYME INCREASED [None]
